FAERS Safety Report 9648524 (Version 1)
Quarter: 2013Q4

REPORT INFORMATION
  Report Type: Spontaneous
  Country: US (occurrence: US)
  Receive Date: 20131028
  Receipt Date: 20131028
  Transmission Date: 20140711
  Serious: Yes (Other)
  Sender: FDA-Public Use
  Company Number: US-SHIRE-ALL1-2013-07079

PATIENT
  Age: 27 Year
  Sex: Female
  Weight: 50.79 kg

DRUGS (2)
  1. ADDERALL XR [Suspect]
     Indication: ATTENTION DEFICIT/HYPERACTIVITY DISORDER
     Dosage: 30 MG, 2X/DAY:BID
     Route: 048
  2. ADDERALL [Concomitant]
     Indication: ATTENTION DEFICIT/HYPERACTIVITY DISORDER
     Dosage: 30 MG, 3X/DAY:TID
     Route: 048

REACTIONS (5)
  - Cardiomegaly [Not Recovered/Not Resolved]
  - Heart rate decreased [Unknown]
  - Energy increased [Unknown]
  - Prescribed overdose [Recovered/Resolved]
  - Drug prescribing error [Recovered/Resolved]
